FAERS Safety Report 13422401 (Version 1)
Quarter: 2017Q2

REPORT INFORMATION
  Report Type: Spontaneous
  Country: US (occurrence: US)
  Receive Date: 20170408
  Receipt Date: 20170408
  Transmission Date: 20170830
  Serious: No
  Sender: FDA-Public Use
  Company Number: None

PATIENT
  Age: 66 Year
  Sex: Female
  Weight: 60.75 kg

DRUGS (4)
  1. XIIDRA [Suspect]
     Active Substance: LIFITEGRAST
     Indication: DRY EYE
     Dosage: ?          QUANTITY:20 DROP(S);?
     Route: 047
     Dates: start: 20170404, end: 20170405
  2. ATENENOL [Concomitant]
  3. AMBIEN [Concomitant]
     Active Substance: ZOLPIDEM TARTRATE
  4. OMEGA3 [Concomitant]

REACTIONS (2)
  - Therapy cessation [None]
  - Rash erythematous [None]

NARRATIVE: CASE EVENT DATE: 20170404
